FAERS Safety Report 9610603 (Version 3)
Quarter: 2013Q4

REPORT INFORMATION
  Report Type: Spontaneous
  Country: NL (occurrence: NL)
  Receive Date: 20131009
  Receipt Date: 20131125
  Transmission Date: 20140711
  Serious: Yes (Other)
  Sender: FDA-Public Use
  Company Number: CHPA2013NL015174

PATIENT
  Age: 60 Year
  Sex: Female

DRUGS (6)
  1. OTRIVIN CARE [Suspect]
     Indication: NASAL CONGESTION
     Dosage: UNK, TID
     Route: 045
     Dates: start: 2010
  2. OTRIVIN CARE [Suspect]
     Indication: ASTHMA
  3. OTRIVIN CARE [Suspect]
     Indication: OFF LABEL USE
  4. VENTOLIN//SALBUTAMOL [Concomitant]
     Indication: ASTHMA
  5. SERETIDE [Concomitant]
     Indication: ASTHMA
  6. PREDNISONE [Concomitant]
     Indication: ASTHMA

REACTIONS (6)
  - Asthma [Recovered/Resolved]
  - Rebound effect [Recovered/Resolved]
  - Therapeutic response unexpected [Not Recovered/Not Resolved]
  - Nasal congestion [Recovered/Resolved]
  - Disease recurrence [Recovered/Resolved]
  - Incorrect drug administration duration [Unknown]
